FAERS Safety Report 9059810 (Version 1)
Quarter: 2013Q1

REPORT INFORMATION
  Report Type: Spontaneous
  Country: US (occurrence: None)
  Receive Date: 20130206
  Receipt Date: 20130206
  Transmission Date: 20140127
  Serious: No
  Sender: FDA-Public Use
  Company Number: None

PATIENT
  Age: 30 Year
  Sex: Female
  Weight: 136.99 kg

DRUGS (1)
  1. FIRAZYR [Suspect]
     Indication: HEREDITARY ANGIOEDEMA
     Dosage: 1-2 TIMES A MONTH
     Route: 058
     Dates: start: 20111201, end: 20130205

REACTIONS (4)
  - Abdominal distension [None]
  - Rash pruritic [None]
  - Rash erythematous [None]
  - Urticaria [None]
